FAERS Safety Report 5627099-9 (Version None)
Quarter: 2008Q1

REPORT INFORMATION
  Report Type: 
  Country: None (occurrence: None)
  Receive Date: 20080130
  Receipt Date: 20071113
  Transmission Date: 20080703
  Serious: Yes (Hospitalization, Other)
  Sender: FDA-Public Use
  Company Number: 42667

PATIENT
  Age: 18 Year
  Sex: Male
  Weight: 125 kg

DRUGS (6)
  1. PROPOFOL [Suspect]
     Indication: ACUTE RESPIRATORY DISTRESS SYNDROME
     Dosage: 3-5MG/K/HR
     Dates: start: 20070211, end: 20080215
  2. MIDAZOLAM HCL [Concomitant]
  3. FENTANY [Concomitant]
  4. SOLU-CORTEF [Concomitant]
  5. REGLAN [Concomitant]
  6. NEXIUM [Concomitant]

REACTIONS (1)
  - BLOOD CREATINE INCREASED [None]
